FAERS Safety Report 17442110 (Version 1)
Quarter: 2020Q1

REPORT INFORMATION
  Report Type: Spontaneous
  Country: FR (occurrence: FR)
  Receive Date: 20200220
  Receipt Date: 20200220
  Transmission Date: 20200409
  Serious: Yes (Hospitalization)
  Sender: FDA-Public Use
  Company Number: FR-ALLERGAN-2007878US

PATIENT
  Sex: Male
  Weight: 79 kg

DRUGS (9)
  1. CLOPIDOGREL [Concomitant]
     Active Substance: CLOPIDOGREL BISULFATE
  2. XATRAL [Concomitant]
     Active Substance: ALFUZOSIN
     Dosage: 10 MG
  3. BISOPROLOL HEMIFUMARATE [Concomitant]
     Active Substance: BISOPROLOL FUMARATE
  4. LINEZOLID. [Suspect]
     Active Substance: LINEZOLID
     Indication: DEVICE RELATED INFECTION
     Dosage: 1200 MG, QD
     Route: 048
     Dates: start: 20180803, end: 20180824
  5. VITAMIN B6 [Concomitant]
     Active Substance: PYRIDOXINE HYDROCHLORIDE
  6. LASILIX [Concomitant]
     Active Substance: FUROSEMIDE
     Dosage: 20 MG
  7. TARDYFERON [Concomitant]
     Active Substance: FERROUS SULFATE
     Dosage: 80 MG
  8. DIGOXIN NATIVELLE [Concomitant]
     Active Substance: DIGOXIN
     Dosage: 0.25 MG
  9. XYDALBA [Suspect]
     Active Substance: DALBAVANCIN HYDROCHLORIDE
     Indication: DEVICE RELATED INFECTION
     Route: 042
     Dates: start: 20180808

REACTIONS (1)
  - Normocytic anaemia [Recovered/Resolved]

NARRATIVE: CASE EVENT DATE: 20180914
